FAERS Safety Report 7178703-8 (Version None)
Quarter: 2010Q4

REPORT INFORMATION
  Report Type: 
  Country: None (occurrence: None)
  Receive Date: 20101221
  Receipt Date: 20101210
  Transmission Date: 20110411
  Serious: Yes (Other)
  Sender: FDA-Public Use
  Company Number: US-RB-016824-10

PATIENT
  Sex: Male

DRUGS (1)
  1. MUCINEX [Suspect]
     Route: 048

REACTIONS (2)
  - DRUG ABUSE [None]
  - NO ADVERSE EVENT [None]
